FAERS Safety Report 7682687-3 (Version None)
Quarter: 2011Q3

REPORT INFORMATION
  Report Type: 
  Country: None (occurrence: None)
  Receive Date: 20110810
  Receipt Date: 20110726
  Transmission Date: 20111222
  Serious: No
  Sender: FDA-Public Use
  Company Number: THQ2011A04378

PATIENT
  Age: 62 Year
  Sex: Male

DRUGS (4)
  1. ENALAPRIL MALEATE [Concomitant]
  2. PIOGLITAZONE HYDROCHLORIDE [Suspect]
     Indication: TYPE 2 DIABETES MELLITUS
     Dosage: 30 MG (30 MG,1 IN 1 D)
     Route: 048
     Dates: start: 20060101, end: 20110601
  3. METFORMIN [Concomitant]
  4. ROSUVASTATIN [Concomitant]

REACTIONS (1)
  - BLADDER CANCER [None]
